FAERS Safety Report 6252916-1 (Version None)
Quarter: 2009Q3

REPORT INFORMATION
  Report Type: 
  Country: None (occurrence: None)
  Receive Date: 20090701
  Receipt Date: 20090623
  Transmission Date: 20100115
  Serious: Yes (Disabling)
  Sender: FDA-Public Use
  Company Number: A0793282A

PATIENT
  Age: 62 Year
  Sex: Male

DRUGS (4)
  1. VALTREX [Suspect]
     Dosage: 2G TWICE PER DAY
     Route: 048
     Dates: start: 20090618
  2. TRICOR [Concomitant]
  3. DIOVAN [Concomitant]
  4. ASPIRIN [Concomitant]

REACTIONS (3)
  - ALLERGIC OEDEMA [None]
  - DIZZINESS [None]
  - STOMATITIS [None]
